FAERS Safety Report 12241071 (Version 4)
Quarter: 2016Q3

REPORT INFORMATION
  Report Type: Report from Study
  Country: US (occurrence: US)
  Receive Date: 20160406
  Receipt Date: 20160710
  Transmission Date: 20161109
  Serious: Yes (Other)
  Sender: FDA-Public Use
  Company Number: US-ROCHE-1736801

PATIENT
  Age: 62 Year
  Sex: Male
  Weight: 118.04 kg

DRUGS (4)
  1. ESBRIET [Suspect]
     Active Substance: PIRFENIDONE
     Dosage: STARTED ABOUT A MONTH AGO, 3 CAPSULES 3 TIMES DAY.
     Route: 048
  2. ESBRIET [Suspect]
     Active Substance: PIRFENIDONE
     Indication: IDIOPATHIC PULMONARY FIBROSIS
     Dosage: 1 CAPSULE THRICE A DAY
     Route: 048
     Dates: start: 20160401, end: 20160403
  3. ESBRIET [Suspect]
     Active Substance: PIRFENIDONE
     Dosage: TAKES 3 CAPSULES OF 267 3 TIMES A DAY
     Route: 048
     Dates: start: 20160411
  4. OXYGEN. [Concomitant]
     Active Substance: OXYGEN
     Indication: IDIOPATHIC PULMONARY FIBROSIS
     Route: 065

REACTIONS (13)
  - Dyspnoea [Not Recovered/Not Resolved]
  - Limb injury [Unknown]
  - Dyspnoea at rest [Not Recovered/Not Resolved]
  - Fatigue [Recovered/Resolved]
  - Oxygen saturation decreased [Not Recovered/Not Resolved]
  - Dyspnoea [Recovered/Resolved with Sequelae]
  - Weight decreased [Not Recovered/Not Resolved]
  - Overweight [Not Recovered/Not Resolved]
  - Drug dose omission [Unknown]
  - Heart rate increased [Recovered/Resolved with Sequelae]
  - Dyspnoea [Not Recovered/Not Resolved]
  - Body mass index increased [Not Recovered/Not Resolved]
  - Hunger [Not Recovered/Not Resolved]

NARRATIVE: CASE EVENT DATE: 20160401
